FAERS Safety Report 5555476-3 (Version None)
Quarter: 2007Q4

REPORT INFORMATION
  Report Type: 
  Country: None (occurrence: None)
  Receive Date: 20071213
  Receipt Date: 20070820
  Transmission Date: 20080405
  Serious: No
  Sender: FDA-Public Use
  Company Number: US-AMGEN-KDL239663

PATIENT
  Sex: Male

DRUGS (2)
  1. ENBREL [Suspect]
     Indication: PSORIATIC ARTHROPATHY
     Route: 058
     Dates: start: 20070621, end: 20070621
  2. ENBREL [Suspect]
     Indication: PSORIASIS

REACTIONS (5)
  - BLEPHARITIS [None]
  - EYE PAIN [None]
  - EYE PRURITUS [None]
  - HALO VISION [None]
  - VISUAL DISTURBANCE [None]
